FAERS Safety Report 21111685 (Version 1)
Quarter: 2022Q3

REPORT INFORMATION
  Report Type: Spontaneous
  Country: ES (occurrence: ES)
  Receive Date: 20220721
  Receipt Date: 20220721
  Transmission Date: 20221026
  Serious: Yes (Hospitalization)
  Sender: FDA-Public Use
  Company Number: None

PATIENT
  Age: 65 Year
  Sex: Female
  Weight: 82 kg

DRUGS (3)
  1. IBUPROFEN [Interacting]
     Active Substance: IBUPROFEN
     Indication: Pain in extremity
     Dosage: 600 MG, PRN (40 COMPRIMIDOS)
     Route: 048
     Dates: start: 20220510, end: 20220630
  2. IBUPROFEN [Interacting]
     Active Substance: IBUPROFEN
     Dosage: 600 MG, Q12H (2-3 DIARIOS EN LA ?LTIMA SEMANA)
     Route: 048
     Dates: start: 20220701, end: 20220707
  3. ASPIRIN [Interacting]
     Active Substance: ASPIRIN
     Indication: Self-medication
     Dosage: UNK (COMPRIMIDO)
     Route: 048
     Dates: start: 2022, end: 20220707

REACTIONS (3)
  - Duodenal ulcer haemorrhage [Recovering/Resolving]
  - Gastric ulcer haemorrhage [Recovering/Resolving]
  - Syncope [Recovered/Resolved]

NARRATIVE: CASE EVENT DATE: 20220702
